FAERS Safety Report 10474094 (Version 1)
Quarter: 2014Q3

REPORT INFORMATION
  Report Type: Spontaneous
  Country: US (occurrence: US)
  Receive Date: 20140924
  Receipt Date: 20140924
  Transmission Date: 20150326
  Serious: No
  Sender: FDA-Public Use
  Company Number: US-BAUSCH-SYM-2014-20910

PATIENT
  Age: 73 Year
  Sex: Male
  Weight: 86.26 kg

DRUGS (2)
  1. HEART MEDICATIONS [Concomitant]
     Indication: CARDIAC DISORDER
  2. EFUDEX [Suspect]
     Active Substance: FLUOROURACIL
     Indication: SKIN DISORDER
     Route: 061
     Dates: start: 201405, end: 20140505

REACTIONS (3)
  - Ocular hyperaemia [Unknown]
  - Pruritus [Unknown]
  - Burning sensation [Unknown]

NARRATIVE: CASE EVENT DATE: 201405
